FAERS Safety Report 24018905 (Version 1)
Quarter: 2024Q2

REPORT INFORMATION
  Report Type: Spontaneous
  Country: US (occurrence: US)
  Receive Date: 20240627
  Receipt Date: 20240627
  Transmission Date: 20240716
  Serious: No
  Sender: FDA-Public Use
  Company Number: US-ROCHE-3538973

PATIENT
  Age: 51 Year
  Sex: Female
  Weight: 57.61 kg

DRUGS (5)
  1. XOLAIR [Suspect]
     Active Substance: OMALIZUMAB
     Indication: Urticaria chronic
     Dosage: TWO 150 MG PFS PER DOSE
     Route: 058
     Dates: start: 20210501
  2. XOLAIR [Suspect]
     Active Substance: OMALIZUMAB
  3. CYTOMEL [Concomitant]
     Active Substance: LIOTHYRONINE SODIUM
     Indication: Autoimmune thyroiditis
     Route: 048
     Dates: start: 2009
  4. TIROSINT [Concomitant]
     Active Substance: LEVOTHYROXINE SODIUM
     Indication: Autoimmune thyroiditis
     Route: 048
     Dates: start: 2019
  5. BENADRYL [Concomitant]
     Active Substance: DIPHENHYDRAMINE HYDROCHLORIDE

REACTIONS (7)
  - Incorrect dose administered [Unknown]
  - Off label use [Unknown]
  - Exposure via skin contact [Unknown]
  - Urticaria [Not Recovered/Not Resolved]
  - Needle issue [Unknown]
  - Syringe issue [Unknown]
  - Device malfunction [Unknown]

NARRATIVE: CASE EVENT DATE: 20240402
